FAERS Safety Report 23205385 (Version 2)
Quarter: 2024Q1

REPORT INFORMATION
  Report Type: Spontaneous
  Country: US (occurrence: US)
  Receive Date: 20231120
  Receipt Date: 20240228
  Transmission Date: 20240409
  Serious: No
  Sender: FDA-Public Use
  Company Number: US-PFIZER INC-PV202300187586

PATIENT
  Age: 41 Year
  Sex: Male
  Weight: 97.506 kg

DRUGS (2)
  1. NURTEC ODT [Suspect]
     Active Substance: RIMEGEPANT SULFATE
     Indication: Migraine
     Dosage: 75 MG, 1X/DAY (MAX 1 TABLET PER 24 HOURS MAX 8 DAYS)
     Route: 048
  2. NURTEC ODT [Suspect]
     Active Substance: RIMEGEPANT SULFATE
     Dosage: ONE EVERY 24 HR AS NEEDED
     Route: 060

REACTIONS (1)
  - Drug ineffective [Unknown]
